FAERS Safety Report 8496825-6 (Version None)
Quarter: 2012Q3

REPORT INFORMATION
  Report Type: 
  Country: None (occurrence: None)
  Receive Date: 20120709
  Receipt Date: 20120705
  Transmission Date: 20120928
  Serious: Yes (Other)
  Sender: FDA-Public Use
  Company Number: FR-PFIZER INC-2012160930

PATIENT
  Age: 40 Year
  Sex: Male

DRUGS (3)
  1. IBUPROFEN (ADVIL) [Suspect]
     Indication: TOOTHACHE
     Dosage: UNK
     Route: 048
     Dates: start: 20120509, end: 20120515
  2. CODEINE PHOSPHATE AND ACETAMINOPHEN [Concomitant]
     Dosage: UNK
     Dates: start: 20120516, end: 20120517
  3. AMOXICILLIN TRIHYDRATE [Suspect]
     Indication: TOOTH INFECTION
     Dosage: 500 MG, 2X/DAY
     Route: 048
     Dates: start: 20120510, end: 20120515

REACTIONS (1)
  - AGRANULOCYTOSIS [None]
